FAERS Safety Report 18978926 (Version 3)
Quarter: 2021Q3

REPORT INFORMATION
  Report Type: Report from Study
  Country: None (occurrence: BR)
  Receive Date: 20210308
  Receipt Date: 20210925
  Transmission Date: 20211014
  Serious: Yes (Other)
  Sender: FDA-Public Use
  Company Number: BR-ABBVIE-21K-020-3797930-00

PATIENT
  Sex: Female
  Weight: 75 kg

DRUGS (2)
  1. CHLOROQUINE. [Concomitant]
     Active Substance: CHLOROQUINE
     Indication: RHEUMATOID ARTHRITIS
     Dosage: UNSPECIFIED DOSE
  2. HUMIRA [Suspect]
     Active Substance: ADALIMUMAB
     Indication: RHEUMATOID ARTHRITIS
     Dosage: UNSPECIFIED DOSE
     Route: 058
     Dates: start: 20140725, end: 20210407

REACTIONS (5)
  - Breast mass [Unknown]
  - Mammoplasty [Unknown]
  - Cerebral disorder [Unknown]
  - Osteoarthritis [Unknown]
  - Breast pain [Unknown]

NARRATIVE: CASE EVENT DATE: 2016
